FAERS Safety Report 25031675 (Version 3)
Quarter: 2025Q1

REPORT INFORMATION
  Report Type: Spontaneous
  Country: US (occurrence: US)
  Receive Date: 20250303
  Receipt Date: 20250307
  Transmission Date: 20250409
  Serious: Yes (Other)
  Sender: PFIZER
  Company Number: US-PFIZER INC-PV202500024682

PATIENT
  Age: 15 Year
  Sex: Male

DRUGS (2)
  1. XELJANZ [Suspect]
     Active Substance: TOFACITINIB CITRATE
     Indication: Juvenile idiopathic arthritis
     Dosage: 5 MG, DAILY
     Route: 048
  2. XELJANZ [Suspect]
     Active Substance: TOFACITINIB CITRATE
     Indication: Latent tuberculosis

REACTIONS (4)
  - Tuberculosis [Unknown]
  - Condition aggravated [Unknown]
  - Bone disorder [Unknown]
  - Off label use [Unknown]
